FAERS Safety Report 10391047 (Version 6)
Quarter: 2016Q2

REPORT INFORMATION
  Report Type: Report from Study
  Country: CA (occurrence: CA)
  Receive Date: 20140818
  Receipt Date: 20160519
  Transmission Date: 20160815
  Serious: Yes (Hospitalization, Other)
  Sender: FDA-Public Use
  Company Number: CA-BAYER-2014-087928

PATIENT
  Age: 67 Year
  Sex: Male

DRUGS (6)
  1. STIVARGA [Suspect]
     Active Substance: REGORAFENIB
     Indication: COLORECTAL CANCER METASTATIC
     Dosage: 120 MG, QD
     Route: 048
     Dates: start: 20140603, end: 201410
  2. AVAPRO [Concomitant]
     Active Substance: IRBESARTAN
     Dosage: 12.5 MG, UNK
  3. ASA [Concomitant]
     Active Substance: ASPIRIN
     Dosage: 81 MG, UNK
  4. STIVARGA [Suspect]
     Active Substance: REGORAFENIB
     Indication: COLORECTAL CANCER METASTATIC
     Dosage: UNK
     Dates: end: 20160317
  5. MINOCYCLINE [Concomitant]
     Active Substance: MINOCYCLINE\MINOCYCLINE HYDROCHLORIDE
  6. GLYBURIDE. [Concomitant]
     Active Substance: GLYBURIDE

REACTIONS (8)
  - Metastases to liver [None]
  - Myalgia [Recovered/Resolved]
  - Blood pressure increased [None]
  - Pain in extremity [None]
  - Gout [Recovered/Resolved]
  - Fatigue [Recovering/Resolving]
  - Dry skin [None]
  - Bile duct obstruction [None]

NARRATIVE: CASE EVENT DATE: 2014
